FAERS Safety Report 5874442-1 (Version None)
Quarter: 2008Q3

REPORT INFORMATION
  Report Type: 
  Country: None (occurrence: None)
  Receive Date: 20080908
  Receipt Date: 20080827
  Transmission Date: 20090109
  Serious: Yes (Death)
  Sender: FDA-Public Use
  Company Number: US-PFIZER INC-2008072120

PATIENT
  Sex: Male
  Weight: 54.9 kg

DRUGS (3)
  1. SUTENT [Suspect]
     Indication: BLADDER CANCER
     Route: 048
     Dates: start: 20080701
  2. ALL OTHER THERAPEUTIC PRODUCTS [Concomitant]
  3. MIDODRINE [Concomitant]

REACTIONS (1)
  - DEATH [None]
